FAERS Safety Report 4874394-7 (Version None)
Quarter: 2005Q4

REPORT INFORMATION
  Report Type: 
  Country: None (occurrence: None)
  Receive Date: 20051201
  Receipt Date: 20050810
  Transmission Date: 20060501
  Serious: No
  Sender: FDA-Public Use
  Company Number: 2005PV001043

PATIENT
  Age: 63 Year
  Sex: Female
  Weight: 122.4712 kg

DRUGS (12)
  1. BYETTA [Suspect]
     Indication: DIABETES MELLITUS NON-INSULIN-DEPENDENT
     Dosage: SEE IMAGE
     Route: 058
     Dates: start: 20050629, end: 20050730
  2. BYETTA [Suspect]
     Indication: DIABETES MELLITUS NON-INSULIN-DEPENDENT
     Dosage: SEE IMAGE
     Route: 058
     Dates: start: 20050801
  3. FUROSEMIDE [Concomitant]
  4. SYNTHROID [Concomitant]
  5. QUINAPRIL [Concomitant]
  6. TRICOR [Concomitant]
  7. KLOR-CON [Concomitant]
  8. ALLOPURINOL [Concomitant]
  9. METFORMIN [Concomitant]
  10. NAPROSYN [Concomitant]
  11. CORTISONE ACETATE TAB [Concomitant]
  12. ASPIRIN [Concomitant]

REACTIONS (3)
  - BLOOD GLUCOSE INCREASED [None]
  - INJECTION SITE BRUISING [None]
  - SKIN DISCOLOURATION [None]
